FAERS Safety Report 15988119 (Version 1)
Quarter: 2019Q1

REPORT INFORMATION
  Report Type: Spontaneous
  Country: JP (occurrence: JP)
  Receive Date: 20190220
  Receipt Date: 20190220
  Transmission Date: 20190418
  Serious: Yes (Other)
  Sender: FDA-Public Use
  Company Number: JP-INGENUS PHARMACEUTICALS, LLC-INF201902-000111

PATIENT
  Age: 75 Year
  Sex: Male

DRUGS (6)
  1. PACLITAXEL. [Concomitant]
     Active Substance: PACLITAXEL
     Indication: PNEUMOTHORAX
  2. OK-432. [Concomitant]
     Active Substance: OK-432
     Indication: PNEUMOTHORAX
  3. PACLITAXEL. [Concomitant]
     Active Substance: PACLITAXEL
     Indication: SKIN ANGIOSARCOMA
     Dosage: 100 MG/M^2
  4. INTERLEUKIN-2 [Concomitant]
     Active Substance: ALDESLEUKIN
     Indication: SKIN ANGIOSARCOMA
  5. PAZOPANIB [Concomitant]
     Active Substance: PAZOPANIB
     Indication: SKIN ANGIOSARCOMA
     Route: 048
  6. DOCETAXEL. [Suspect]
     Active Substance: DOCETAXEL
     Indication: SKIN ANGIOSARCOMA

REACTIONS (1)
  - Pneumonia [Unknown]
